FAERS Safety Report 9586079 (Version 1)
Quarter: 2013Q4

REPORT INFORMATION
  Report Type: Spontaneous
  Country: US (occurrence: None)
  Receive Date: 20131001
  Receipt Date: 20131001
  Transmission Date: 20140711
  Serious: Yes (Death, Other)
  Sender: FDA-Public Use
  Company Number: VAL_02747_2013

PATIENT
  Sex: Female

DRUGS (19)
  1. METOPROLOL TARTRATE [Suspect]
     Indication: PRODUCT USED FOR UNKNOWN INDICATION
  2. FAMVIR [Suspect]
     Indication: PRODUCT USED FOR UNKNOWN INDICATION
  3. FLUCONAZOLE [Suspect]
     Indication: PRODUCT USED FOR UNKNOWN INDICATION
  4. RAMIPRIL [Suspect]
     Indication: PRODUCT USED FOR UNKNOWN INDICATION
  5. VENTOLIN [Suspect]
     Indication: PRODUCT USED FOR UNKNOWN INDICATION
  6. ATROVENT (ATROVENT-IPRATROPIUM) [Suspect]
     Indication: PRODUCT USED FOR UNKNOWN INDICATION
  7. FUNGILIN [Suspect]
     Indication: PRODUCT USED FOR UNKNOWN INDICATION
  8. KENALOG-SALICYLIC ACID, TRIAMCINOACETONIDE [Suspect]
     Indication: PRODUCT USED FOR UNKNOWN INDICATION
  9. MAXOLON (MAXOLON METCLOPRAMIDE) [Suspect]
     Indication: PRODUCT USED FOR UNKNOWN INDICATION
  10. NEXIUM 1-2-3 [Suspect]
     Indication: PRODUCT USED FOR UNKNOWN INDICATION
  11. NIZATIDINE [Suspect]
     Indication: PRODUCT USED FOR UNKNOWN INDICATION
  12. SPIRONOLACTONE [Suspect]
     Indication: PRODUCT USED FOR UNKNOWN INDICATION
  13. TEMAZEPAM [Suspect]
     Indication: PRODUCT USED FOR UNKNOWN INDICATION
  14. PANADEINE FORTE-CODEINE PHOSPHATE, PARACETAMOL [Suspect]
  15. PANAMAX (PANAMAX-PARACETAMOL) [Suspect]
     Indication: PRODUCT USED FOR UNKNOWN INDICATION
  16. PARIET [Suspect]
     Indication: PRODUCT USED FOR UNKNOWN INDICATION
  17. PRADAXA (PRADAXA-DABIGATRAN ETEXILATE) [Suspect]
     Indication: PRODUCT USED FOR UNKNOWN INDICATION
  18. SERETIDE (SERETIDE-FLUTICASONE) [Suspect]
     Indication: PRODUCT USED FOR UNKNOWN INDICATION
  19. SPIRIVA (SPIRIVA-TIOTROPIUM BROMIDE) [Suspect]
     Indication: PRODUCT USED FOR UNKNOWN INDICATION

REACTIONS (1)
  - Pancreatic carcinoma [None]
